FAERS Safety Report 5640495-9 (Version None)
Quarter: 2008Q1

REPORT INFORMATION
  Report Type: 
  Country: None (occurrence: None)
  Receive Date: 20080227
  Receipt Date: 20080128
  Transmission Date: 20080703
  Serious: Yes (Hospitalization)
  Sender: FDA-Public Use
  Company Number: US-BAXTER-2008BH000825

PATIENT
  Age: 74 Year
  Sex: Male
  Weight: 88 kg

DRUGS (13)
  1. HEPARIN SODIUM [Suspect]
     Indication: THROMBOSIS PROPHYLAXIS
     Route: 040
     Dates: start: 20080118, end: 20080118
  2. HEPARIN SODIUM [Suspect]
     Route: 040
     Dates: start: 20080101
  3. APRESOLINE [Concomitant]
     Indication: HYPERTENSION
     Dosage: DOSE UNIT:UNKNOWN
     Route: 065
  4. PHOSLO [Concomitant]
     Indication: RENAL FAILURE CHRONIC
     Dosage: DOSE UNIT:UNKNOWN
     Route: 065
  5. RENAGEL [Concomitant]
     Indication: RENAL FAILURE CHRONIC
     Dosage: DOSE UNIT:UNKNOWN
     Route: 065
  6. LIPITOR [Concomitant]
     Indication: DRUG USE FOR UNKNOWN INDICATION
     Dosage: DOSE UNIT:UNKNOWN
     Route: 048
  7. NEPHROCAPS [Concomitant]
     Indication: RENAL FAILURE CHRONIC
     Dosage: DOSE UNIT:UNKNOWN
     Route: 048
  8. NITROGLYCERIN [Concomitant]
     Indication: RENAL FAILURE CHRONIC
     Dosage: DOSE UNIT:UNKNOWN
     Route: 065
  9. INSULIN [Concomitant]
     Indication: DIABETES MELLITUS
     Dosage: DOSE UNIT:UNKNOWN
     Route: 058
  10. ZYLOPRIM [Concomitant]
     Indication: RENAL FAILURE CHRONIC
     Dosage: DOSE UNIT:UNKNOWN
     Route: 065
  11. EPOGEN [Concomitant]
     Indication: RENAL FAILURE CHRONIC
     Dosage: DOSE UNIT:UNKNOWN
     Route: 065
  12. ZEMPLAR [Concomitant]
     Indication: RENAL FAILURE CHRONIC
     Dosage: DOSE UNIT:UNKNOWN
     Route: 065
  13. VENOFER [Concomitant]
     Indication: RENAL FAILURE CHRONIC
     Dosage: DOSE UNIT:UNKNOWN
     Route: 048

REACTIONS (3)
  - ABDOMINAL PAIN [None]
  - COLD SWEAT [None]
  - NAUSEA [None]
